FAERS Safety Report 7673559-9 (Version None)
Quarter: 2011Q3

REPORT INFORMATION
  Report Type: 
  Country: None (occurrence: None)
  Receive Date: 20110810
  Receipt Date: 20110727
  Transmission Date: 20111222
  Serious: Yes (Other)
  Sender: FDA-Public Use
  Company Number: ES-ELI_LILLY_AND_COMPANY-ES201107007487

PATIENT
  Sex: Female
  Weight: 81 kg

DRUGS (7)
  1. NEXIUM [Concomitant]
     Indication: GASTRITIS PROPHYLAXIS
     Dosage: 1 DF, QD
     Route: 048
  2. PROZAC [Concomitant]
     Indication: ANTIDEPRESSANT THERAPY
     Dosage: 1 DF, BID
     Route: 048
  3. FORTEO [Suspect]
     Indication: OSTEOPOROSIS
     Dosage: 20 UG, QD
     Route: 058
     Dates: start: 20110513
  4. MINOTON [Concomitant]
     Indication: GASTRITIS PROPHYLAXIS
     Dosage: 1 DF, QD
     Route: 048
  5. LANTANON [Concomitant]
     Indication: ANTIDEPRESSANT THERAPY
     Dosage: 1 DF, QD
     Route: 048
  6. MIDAZOLAM HCL [Concomitant]
     Dosage: 1 DF, QD
     Route: 048
  7. LEXATIN [Concomitant]
     Indication: ANXIETY
     Dosage: 1 DF, TID
     Route: 048

REACTIONS (1)
  - WEIGHT INCREASED [None]
